FAERS Safety Report 4556914-5 (Version None)
Quarter: 2005Q1

REPORT INFORMATION
  Report Type: 
  Country: None (occurrence: None)
  Receive Date: 20050120
  Receipt Date: 20041022
  Transmission Date: 20050727
  Serious: Yes (Other)
  Sender: FDA-Public Use
  Company Number: PHBS2004CA14248

PATIENT
  Sex: Female

DRUGS (3)
  1. CLOZARIL [Suspect]
     Indication: SCHIZOPHRENIA
     Dosage: 450 TO 600 MG/DAY
     Route: 048
  2. CLOZARIL [Suspect]
     Dosage: 400 MG/D
     Route: 048
  3. ANTIDIABETICS [Concomitant]
     Route: 065

REACTIONS (7)
  - DYSSTASIA [None]
  - ELECTROENCEPHALOGRAM ABNORMAL [None]
  - MANIA [None]
  - PSYCHOTIC DISORDER [None]
  - REFLEXES ABNORMAL [None]
  - SPEECH DISORDER [None]
  - TIC [None]
